FAERS Safety Report 14576583 (Version 1)
Quarter: 2018Q1

REPORT INFORMATION
  Report Type: Spontaneous
  Country: CO (occurrence: CO)
  Receive Date: 20180227
  Receipt Date: 20180227
  Transmission Date: 20180509
  Serious: Yes (Hospitalization)
  Sender: FDA-Public Use
  Company Number: CO-ROCHE-2074286

PATIENT
  Sex: Female

DRUGS (2)
  1. TOCILIZUMAB. [Suspect]
     Active Substance: TOCILIZUMAB
     Indication: AUTOIMMUNE LYMPHOPROLIFERATIVE SYNDROME
     Route: 065
     Dates: start: 2017
  2. TOCILIZUMAB. [Suspect]
     Active Substance: TOCILIZUMAB
     Indication: RHEUMATOID ARTHRITIS

REACTIONS (5)
  - Cardiac disorder [Unknown]
  - Intentional product use issue [Unknown]
  - Off label use [Unknown]
  - Viral myocarditis [Unknown]
  - Drug dose omission [Unknown]
